FAERS Safety Report 8791709 (Version 1)
Quarter: 2012Q4

REPORT INFORMATION
  Report Type: 
  Country: US (occurrence: US)
  Receive Date: 20120918
  Receipt Date: 20120918
  Transmission Date: 20130627
  Serious: No
  Sender: FDA-Public Use
  Company Number: US-ASTRAZENECA-2012SE70155

PATIENT
  Age: 53 Year
  Sex: Female

DRUGS (7)
  1. CAPRELSA [Suspect]
     Route: 048
     Dates: start: 20120826
  2. ALLEGRA [Concomitant]
  3. FERROUS SULFATE [Concomitant]
  4. LEVOTHYROXINE [Concomitant]
  5. OMEPRAZOLE [Concomitant]
  6. ASPIRN [Concomitant]
  7. VITAMIN D [Concomitant]

REACTIONS (2)
  - Palpitations [Unknown]
  - Blood pressure increased [Unknown]
